FAERS Safety Report 12372861 (Version 3)
Quarter: 2017Q1

REPORT INFORMATION
  Report Type: Report from Study
  Country: CO (occurrence: CO)
  Receive Date: 20160516
  Receipt Date: 20170302
  Transmission Date: 20170428
  Serious: Yes (Death, Other)
  Sender: FDA-Public Use
  Company Number: CO-REGENERON PHARMACEUTICALS, INC.-2016-17116

PATIENT

DRUGS (2)
  1. EYLEA [Suspect]
     Active Substance: AFLIBERCEPT
     Indication: RETINAL VEIN OCCLUSION
     Dosage: 2 DF, ONCE (1ST INJECTION)
     Dates: start: 20140115, end: 20140115
  2. EYLEA [Suspect]
     Active Substance: AFLIBERCEPT
     Dosage: 2 DF, ONCE (2ND INJECTION)
     Dates: start: 20140714, end: 20140714

REACTIONS (2)
  - Cardiac arrest [Fatal]
  - Inappropriate schedule of drug administration [Unknown]

NARRATIVE: CASE EVENT DATE: 2014
